FAERS Safety Report 9737541 (Version 2)
Quarter: 2013Q4

REPORT INFORMATION
  Report Type: Report from Study
  Country: CN (occurrence: CN)
  Receive Date: 20131206
  Receipt Date: 20131220
  Transmission Date: 20140711
  Serious: Yes (Hospitalization)
  Sender: FDA-Public Use
  Company Number: CN-AMGEN-CHNCT2013085459

PATIENT
  Age: 34 Year
  Sex: Male

DRUGS (5)
  1. DARBEPOETIN ALFA [Suspect]
     Indication: NEPHROGENIC ANAEMIA
     Dosage: 20 MUG, UNK
     Route: 042
     Dates: start: 20131119
  2. AMLODIPINE BESYLATE [Concomitant]
     Dosage: 5 MG, BID
     Route: 065
     Dates: start: 201309
  3. METOPROLOL TARTRATE [Concomitant]
     Dosage: 12.5 MG, QD
     Route: 065
     Dates: start: 201309
  4. CALCITRIOL [Concomitant]
     Dosage: 25 MUG, QD
     Route: 065
     Dates: start: 201309
  5. ISOSORBIDE MONONITRATE [Concomitant]
     Dosage: 40 MG, QN
     Route: 065
     Dates: start: 201309

REACTIONS (1)
  - Upper respiratory tract infection [Recovering/Resolving]
